FAERS Safety Report 7319587-4 (Version None)
Quarter: 2011Q1

REPORT INFORMATION
  Report Type: 
  Country: None (occurrence: None)
  Receive Date: 20110228
  Receipt Date: 20100603
  Transmission Date: 20110831
  Serious: No
  Sender: FDA-Public Use
  Company Number: A0862734A

PATIENT
  Age: 18 Year
  Sex: Female

DRUGS (2)
  1. LAMOTRIGINE [Suspect]
     Indication: DEPRESSION
     Route: 048
     Dates: start: 20100301, end: 20100501
  2. PAXIL [Concomitant]

REACTIONS (4)
  - PRURITUS [None]
  - URTICARIA [None]
  - SKIN DISCOLOURATION [None]
  - ERYTHEMA [None]
